FAERS Safety Report 7818996-4 (Version None)
Quarter: 2011Q4

REPORT INFORMATION
  Report Type: 
  Country: None (occurrence: None)
  Receive Date: 20111018
  Receipt Date: 20111007
  Transmission Date: 20120403
  Serious: Yes (Other)
  Sender: FDA-Public Use
  Company Number: NL-AMGEN-NLDSP2011052673

PATIENT
  Age: 58 Year
  Sex: Female

DRUGS (3)
  1. OMEPRAZOLE [Concomitant]
     Dosage: 40 MG, 1X/DAY
  2. ENBREL [Suspect]
     Indication: RHEUMATOID ARTHRITIS
     Dosage: 50 MG, WEEKLY
     Dates: start: 20110418
  3. ATENOLOL [Concomitant]
     Dosage: 100 MG, 1X/DAY

REACTIONS (3)
  - MUSCULOSKELETAL DISCOMFORT [None]
  - RHEUMATOID ARTHRITIS [None]
  - JOINT INJURY [None]
